FAERS Safety Report 8533364-8 (Version None)
Quarter: 2012Q3

REPORT INFORMATION
  Report Type: 
  Country: None (occurrence: None)
  Receive Date: 20120724
  Receipt Date: 20120718
  Transmission Date: 20120928
  Serious: Yes (Other)
  Sender: FDA-Public Use
  Company Number: PHEH2012US012457

PATIENT
  Sex: Female

DRUGS (9)
  1. SYNTHROID [Suspect]
     Indication: THYROID DISORDER
     Dosage: 88 MG, DAILY
     Route: 048
  2. ULTIMATE EYE SUPPORT [Concomitant]
     Route: 048
  3. PANTOPRAZOLE [Concomitant]
     Indication: GASTROOESOPHAGEAL REFLUX DISEASE
     Dosage: 40 MG, DAILY
     Route: 048
  4. ASPIRIN [Concomitant]
     Dosage: 81 MG, DAILY
     Route: 048
  5. MULTI-VITAMIN [Concomitant]
     Route: 048
  6. METAMUCIL-2 [Concomitant]
     Route: 048
  7. GLEEVEC [Suspect]
     Indication: CHRONIC MYELOID LEUKAEMIA
     Dosage: 300 MG,
     Route: 048
  8. METOPROLOL TARTRATE [Concomitant]
     Indication: BLOOD PRESSURE
     Dosage: 0.5 DF, DAILY
     Route: 048
  9. CALCIUM CARBONATE [Concomitant]
     Indication: BLOOD CALCIUM
     Route: 048

REACTIONS (3)
  - MUSCLE SPASMS [None]
  - THYROID CANCER [None]
  - NEOPLASM MALIGNANT [None]
